FAERS Safety Report 5449204-X (Version None)
Quarter: 2007Q3

REPORT INFORMATION
  Report Type: 
  Country: None (occurrence: None)
  Receive Date: 20070911
  Receipt Date: 20070907
  Transmission Date: 20080115
  Serious: Yes (Death)
  Sender: FDA-Public Use
  Company Number: FR-BOEHRINGER INGELHEIM PHARMACEUTICALS, INC.-2007-FF-00894FF

PATIENT
  Age: 56 Year
  Sex: Male

DRUGS (2)
  1. MICARDIS [Suspect]
     Route: 048
  2. SIMVASTATIN [Concomitant]

REACTIONS (1)
  - DEATH [None]
